FAERS Safety Report 16733300 (Version 5)
Quarter: 2020Q2

REPORT INFORMATION
  Report Type: Spontaneous
  Country: US (occurrence: US)
  Receive Date: 20190823
  Receipt Date: 20200420
  Transmission Date: 20200713
  Serious: Yes (Hospitalization, Other)
  Sender: FDA-Public Use
  Company Number: US-009507513-1908USA006304

PATIENT
  Age: 31 Year
  Sex: Female
  Weight: 136.51 kg

DRUGS (4)
  1. LEXAPRO [Concomitant]
     Active Substance: ESCITALOPRAM OXALATE
     Dosage: UNK
  2. IRON (UNSPECIFIED) [Concomitant]
     Active Substance: IRON
  3. VITAMINS (UNSPECIFIED) [Concomitant]
     Active Substance: VITAMINS
  4. NEXPLANON [Suspect]
     Active Substance: ETONOGESTREL
     Indication: CONTRACEPTION
     Dosage: 1 ROD (STRENGTH: 68 MG) EVERY 3 YEARS
     Route: 059
     Dates: start: 201810

REACTIONS (15)
  - Premature separation of placenta [Unknown]
  - Caesarean section [Recovered/Resolved]
  - Device placement issue [Not Recovered/Not Resolved]
  - Chest pain [Recovered/Resolved]
  - Abdominal pain [Unknown]
  - Pregnancy with implant contraceptive [Recovered/Resolved]
  - Scar [Unknown]
  - Complication associated with device [Not Recovered/Not Resolved]
  - Lumbar puncture [Unknown]
  - Premature delivery [Recovered/Resolved]
  - Unintended pregnancy [Recovered/Resolved]
  - Vaginal haemorrhage [Recovered/Resolved]
  - Headache [Recovered/Resolved]
  - Product dose omission [Unknown]
  - Back pain [Recovered/Resolved]

NARRATIVE: CASE EVENT DATE: 20180928
